FAERS Safety Report 19540984 (Version 1)
Quarter: 2021Q3

REPORT INFORMATION
  Report Type: Report from Study
  Country: ZA (occurrence: ZA)
  Receive Date: 20210713
  Receipt Date: 20210713
  Transmission Date: 20211014
  Serious: Yes (Death)
  Sender: FDA-Public Use
  Company Number: ZA-ASTRAZENECA-2021A612567

PATIENT
  Age: 21561 Day
  Sex: Male

DRUGS (4)
  1. DYNA?INDAPAMIDE SR [Concomitant]
     Dosage: 1.5MG UNKNOWN
  2. SYMBICORD [Suspect]
     Active Substance: BUDESONIDE\FORMOTEROL
     Dosage: 120 DOSE, 160 MCG/INHAL, UNKNOWN UNKNOWN
     Route: 055
  3. SYMBICORD [Suspect]
     Active Substance: BUDESONIDE\FORMOTEROL
     Dosage: 60 DOSE, 160 MCG/INHAL, UNKNOWN UNKNOWN
     Route: 055
  4. DYNARB [Concomitant]
     Dosage: 300.0MG UNKNOWN

REACTIONS (1)
  - Death [Fatal]

NARRATIVE: CASE EVENT DATE: 20210703
